FAERS Safety Report 5003018-3 (Version None)
Quarter: 2006Q2

REPORT INFORMATION
  Report Type: 
  Country: None (occurrence: None)
  Receive Date: 20060516
  Receipt Date: 20060328
  Transmission Date: 20061013
  Serious: Yes (Other)
  Sender: FDA-Public Use
  Company Number: JP-MERCK-0603USA04696

PATIENT
  Age: 88 Year
  Sex: Male

DRUGS (6)
  1. SINGULAIR [Suspect]
     Indication: ASTHMA
     Route: 048
     Dates: start: 20060220, end: 20060307
  2. FLAVERIC [Concomitant]
     Indication: COUGH
     Route: 048
     Dates: start: 20060202, end: 20060313
  3. MEDICON [Concomitant]
     Indication: COUGH
     Route: 048
     Dates: start: 20060202, end: 20060313
  4. ERYTHROCIN [Concomitant]
     Indication: INFECTION PROPHYLAXIS
     Route: 048
     Dates: start: 20060216, end: 20060227
  5. FLUTIDE [Concomitant]
     Indication: COUGH
     Route: 055
     Dates: start: 20060227, end: 20060309
  6. DOGMATYL [Concomitant]
     Indication: INCREASED APPETITE
     Route: 048
     Dates: start: 20060306, end: 20060306

REACTIONS (1)
  - TREMOR [None]
